FAERS Safety Report 23470973 (Version 1)
Quarter: 2024Q1

REPORT INFORMATION
  Report Type: Report from Study
  Country: CA (occurrence: CA)
  Receive Date: 20240202
  Receipt Date: 20240202
  Transmission Date: 20240409
  Serious: Yes (Hospitalization)
  Sender: FDA-Public Use
  Company Number: CA-ABBVIE-5611572

PATIENT
  Age: 27 Year
  Sex: Male

DRUGS (1)
  1. RINVOQ [Suspect]
     Active Substance: UPADACITINIB
     Indication: Colitis ulcerative
     Route: 048
     Dates: start: 20230527

REACTIONS (5)
  - Ileostomy [Unknown]
  - Condition aggravated [Unknown]
  - Unevaluable event [Unknown]
  - Perforation [Unknown]
  - Obstruction [Unknown]

NARRATIVE: CASE EVENT DATE: 20230101
